FAERS Safety Report 9763754 (Version 4)
Quarter: 2015Q1

REPORT INFORMATION
  Report Type: Spontaneous
  Country: US (occurrence: US)
  Receive Date: 20131216
  Receipt Date: 20150120
  Transmission Date: 20150721
  Serious: No
  Sender: FDA-Public Use
  Company Number: US-BIOGENIDEC-2013BI116681

PATIENT
  Age: 38 Year
  Sex: Female

DRUGS (2)
  1. TECFIDERA [Suspect]
     Active Substance: DIMETHYL FUMARATE
     Indication: MULTIPLE SCLEROSIS
     Dates: start: 20131105, end: 20131119
  2. AVONEX [Concomitant]
     Active Substance: INTERFERON BETA-1A
     Indication: MULTIPLE SCLEROSIS
     Route: 030
     Dates: start: 20131218

REACTIONS (11)
  - Gastric disorder [Recovered/Resolved]
  - White blood cell count increased [Unknown]
  - Erythema [Unknown]
  - Memory impairment [Unknown]
  - Burning sensation [Unknown]
  - Flushing [Recovered/Resolved]
  - Abdominal discomfort [Unknown]
  - Drug ineffective [Unknown]
  - Pain [Unknown]
  - Fatigue [Recovered/Resolved]
  - Red blood cell count increased [Unknown]

NARRATIVE: CASE EVENT DATE: 20131105
